FAERS Safety Report 19436806 (Version 3)
Quarter: 2021Q3

REPORT INFORMATION
  Report Type: Spontaneous
  Country: GB (occurrence: GB)
  Receive Date: 20210618
  Receipt Date: 20210817
  Transmission Date: 20211014
  Serious: Yes (Death)
  Sender: FDA-Public Use
  Company Number: GB-SA-2021SA199605

PATIENT
  Age: 45 Year
  Sex: Male

DRUGS (8)
  1. CO?AMOXICLAVE [Concomitant]
     Active Substance: AMOXICILLIN\CLAVULANATE POTASSIUM
     Dosage: 500 MG
  2. FOSTAIR [Concomitant]
     Active Substance: BECLOMETHASONE\FORMOTEROL
     Dosage: UNK
  3. DERMOVATE [Concomitant]
     Active Substance: CLOBETASOL
     Dosage: UNK
  4. AMOXYCILLIN [AMOXICILLIN] [Concomitant]
     Dosage: 50 MG
  5. DUPILUMAB [Suspect]
     Active Substance: DUPILUMAB
     Indication: DERMATITIS ATOPIC
     Dosage: 300 MG, QOW
     Route: 058
     Dates: start: 20190415
  6. SERTRALINE [Concomitant]
     Active Substance: SERTRALINE HYDROCHLORIDE
     Dosage: 50 MG
  7. SERTRALINE [Concomitant]
     Active Substance: SERTRALINE HYDROCHLORIDE
     Dosage: 100 MG
  8. ZIPZOC [Concomitant]
     Dosage: UNK

REACTIONS (2)
  - Left ventricular hypertrophy [Fatal]
  - Musculoskeletal chest pain [Unknown]
